FAERS Safety Report 8297218-7 (Version None)
Quarter: 2012Q2

REPORT INFORMATION
  Report Type: 
  Country: None (occurrence: None)
  Receive Date: 20120419
  Receipt Date: 20120411
  Transmission Date: 20120825
  Serious: Yes (Hospitalization)
  Sender: FDA-Public Use
  Company Number: US-BAYER-2011-099087

PATIENT
  Age: 42 Year
  Sex: Female
  Weight: 72.562 kg

DRUGS (2)
  1. DROSPIRENONE AND ETHINYL ESTRADIOL [Suspect]
     Indication: DYSFUNCTIONAL UTERINE BLEEDING
     Dosage: UNK
     Dates: start: 20090804, end: 20090824
  2. CELEBREX [Concomitant]

REACTIONS (12)
  - PAIN [None]
  - GENERAL PHYSICAL HEALTH DETERIORATION [None]
  - MENORRHAGIA [None]
  - INJURY [None]
  - GAIT DISTURBANCE [None]
  - ANXIETY [None]
  - MUSCLE SPASMS [None]
  - ANAEMIA [None]
  - ERYTHEMA [None]
  - DEEP VEIN THROMBOSIS [None]
  - OEDEMA PERIPHERAL [None]
  - EMOTIONAL DISTRESS [None]
